FAERS Safety Report 25967544 (Version 1)
Quarter: 2025Q4

REPORT INFORMATION
  Report Type: Spontaneous
  Country: US (occurrence: US)
  Receive Date: 20251028
  Receipt Date: 20251028
  Transmission Date: 20260117
  Serious: No
  Sender: SUNOVION
  Company Number: US-SUMITOMO PHARMA SWITZERLAND GMBH-2025SPA012966

PATIENT
  Sex: Male

DRUGS (1)
  1. ORGOVYX [Suspect]
     Active Substance: RELUGOLIX
     Indication: Prostate cancer
     Dosage: UNK
     Route: 048

REACTIONS (7)
  - Amnesia [Unknown]
  - Testicular pain [Unknown]
  - Hair growth abnormal [Unknown]
  - Anxiety [Unknown]
  - Erectile dysfunction [Unknown]
  - Libido decreased [Unknown]
  - Depression [Unknown]
